FAERS Safety Report 7388722-4 (Version None)
Quarter: 2011Q2

REPORT INFORMATION
  Report Type: 
  Country: None (occurrence: None)
  Receive Date: 20110401
  Receipt Date: 20110324
  Transmission Date: 20111010
  Serious: Yes (Death, Other)
  Sender: FDA-Public Use
  Company Number: JP-BAYER-201015090BYL

PATIENT
  Sex: Male
  Weight: 79 kg

DRUGS (9)
  1. NEXAVAR [Suspect]
     Indication: HEPATIC NEOPLASM MALIGNANT
     Dosage: 400 MG, BID
     Route: 048
     Dates: start: 20100901, end: 20101005
  2. DIOVAN [Concomitant]
     Dosage: DAILY DOSE 80 MG
     Route: 048
     Dates: end: 20101005
  3. CRESTOR [Concomitant]
     Dosage: DAILY DOSE 5 MG
     Route: 048
     Dates: end: 20101005
  4. PYDOXAL [Concomitant]
     Dosage: DAILY DOSE 20 MG
     Route: 048
     Dates: end: 20101005
  5. AMLODIPINE [Concomitant]
     Dosage: DAILY DOSE 5 MG
     Route: 048
     Dates: end: 20101005
  6. URINORM [Concomitant]
     Dosage: DAILY DOSE 25 MG
     Route: 048
     Dates: end: 20101005
  7. RIBOFLAVIN TAB [Concomitant]
     Dosage: DAILY DOSE 20 MG
     Route: 048
     Dates: end: 20101005
  8. ASPIRIN [Concomitant]
     Dosage: DAILY DOSE 100 MG
     Route: 048
     Dates: end: 20101005
  9. TAKEPRON [Concomitant]
     Dosage: DAILY DOSE 30 MG
     Route: 048
     Dates: end: 20101005

REACTIONS (4)
  - GASTROINTESTINAL PERFORATION [None]
  - HEPATIC FAILURE [None]
  - HYPONATRAEMIA [None]
  - MALAISE [None]
